FAERS Safety Report 10110479 (Version 1)
Quarter: 2014Q2

REPORT INFORMATION
  Report Type: Spontaneous
  Country: RU (occurrence: RU)
  Receive Date: 20140425
  Receipt Date: 20140425
  Transmission Date: 20141212
  Serious: Yes (Other)
  Sender: FDA-Public Use
  Company Number: PHHY2014RU049875

PATIENT
  Age: 50 Year
  Sex: Female

DRUGS (1)
  1. MIACALCIC [Suspect]
     Dosage: UNK UKN, UNK
     Route: 006

REACTIONS (1)
  - Urticaria [Recovered/Resolved]
